FAERS Safety Report 21328597 (Version 1)
Quarter: 2022Q3

REPORT INFORMATION
  Report Type: Report from Study
  Country: US (occurrence: US)
  Receive Date: 20220913
  Receipt Date: 20220913
  Transmission Date: 20221027
  Serious: No
  Sender: FDA-Public Use
  Company Number: US-BIOVITRUM-2022US10555

PATIENT
  Age: 36 Year
  Sex: Female

DRUGS (7)
  1. KINERET [Suspect]
     Active Substance: ANAKINRA
     Indication: Pericarditis
     Dates: start: 20220907
  2. GABAPENTIN [Concomitant]
     Active Substance: GABAPENTIN
  3. VANCOMYCIN [Concomitant]
     Active Substance: VANCOMYCIN
  4. COLCHICINE [Concomitant]
     Active Substance: COLCHICINE
  5. BACLOFEN [Concomitant]
     Active Substance: BACLOFEN
  6. FLOMAX [Concomitant]
     Active Substance: TAMSULOSIN HYDROCHLORIDE
  7. INDOMETHACIN [Concomitant]
     Active Substance: INDOMETHACIN

REACTIONS (4)
  - Tissue injury [Unknown]
  - Injection site pain [Unknown]
  - Injection site bruising [Unknown]
  - Off label use [Not Recovered/Not Resolved]

NARRATIVE: CASE EVENT DATE: 20220907
